FAERS Safety Report 10182577 (Version 1)
Quarter: 2014Q2

REPORT INFORMATION
  Report Type: Spontaneous
  Country: GB (occurrence: None)
  Receive Date: 20140516
  Receipt Date: 20140516
  Transmission Date: 20141212
  Serious: Yes (Life-Threatening, Hospitalization, Disabling, Other)
  Sender: FDA-Public Use
  Company Number: AUR-APL-2014-05568

PATIENT
  Age: 85 Year
  Sex: Female

DRUGS (2)
  1. SERTRALINE (SERTRALINE) [Suspect]
     Indication: DEPRESSION
     Route: 048
     Dates: start: 20131209, end: 20140124
  2. DIAZEPAM (DIAZEPAM) [Concomitant]

REACTIONS (1)
  - Atrial fibrillation [None]
